FAERS Safety Report 5447317-X (Version None)
Quarter: 2007Q3

REPORT INFORMATION
  Report Type: 
  Country: None (occurrence: None)
  Receive Date: 20070910
  Receipt Date: 20070907
  Transmission Date: 20080115
  Serious: Yes (Hospitalization)
  Sender: FDA-Public Use
  Company Number: NO-BRISTOL-MYERS SQUIBB COMPANY-13857909

PATIENT
  Age: 87 Year
  Sex: Female

DRUGS (5)
  1. IRBESARTAN [Suspect]
     Indication: CARDIAC FAILURE
     Route: 048
     Dates: start: 20030307
  2. BLINDED: PLACEBO [Suspect]
     Indication: CARDIAC FAILURE
     Route: 048
     Dates: start: 20030307
  3. MAREVAN [Concomitant]
  4. CENTYL [Concomitant]
     Dates: start: 20070620, end: 20070724
  5. ISOPTIN [Concomitant]
     Dates: end: 20070724

REACTIONS (2)
  - DEHYDRATION [None]
  - RENAL FAILURE [None]
